FAERS Safety Report 7398791-3 (Version None)
Quarter: 2011Q2

REPORT INFORMATION
  Report Type: 
  Country: None (occurrence: None)
  Receive Date: 20110401
  Receipt Date: 20110401
  Transmission Date: 20111010
  Serious: Yes (Life-Threatening)
  Sender: FDA-Public Use
  Company Number: None

PATIENT
  Age: 44 Year
  Sex: Female
  Weight: 52.1637 kg

DRUGS (1)
  1. CYMBALTA [Suspect]
     Dosage: NIGHTLY PO ESTIMATE, IN RECORDS
     Route: 048
     Dates: start: 20110312, end: 20110313

REACTIONS (4)
  - DELUSION [None]
  - ANGER [None]
  - DRUG DISPENSING ERROR [None]
  - DRUG ADMINISTRATION ERROR [None]
